FAERS Safety Report 15146594 (Version 1)
Quarter: 2018Q4

REPORT INFORMATION
  Report Type: Spontaneous
  Country: None (occurrence: US)
  Receive Date: 20180715
  Receipt Date: 20180715
  Transmission Date: 20190204
  Serious: No
  Sender: FDA-Public Use
  Company Number: US-CEDIPROF, INC.-2052090

PATIENT
  Age: 32 Year
  Sex: Female
  Weight: 56.82 kg

DRUGS (2)
  1. LEVO-T [Suspect]
     Active Substance: LEVOTHYROXINE SODIUM
     Indication: AUTOIMMUNE THYROIDITIS
     Route: 048
  2. NADOLOL. [Concomitant]
     Active Substance: NADOLOL

REACTIONS (3)
  - Suppressed lactation [Not Recovered/Not Resolved]
  - Alopecia [Not Recovered/Not Resolved]
  - Palpitations [Recovered/Resolved]
